FAERS Safety Report 5264969-8 (Version None)
Quarter: 2007Q1

REPORT INFORMATION
  Report Type: 
  Country: None (occurrence: None)
  Receive Date: 20070314
  Receipt Date: 20070307
  Transmission Date: 20070707
  Serious: Yes (Hospitalization)
  Sender: FDA-Public Use
  Company Number: AT-ROCHE-469191

PATIENT
  Age: 21 Year
  Sex: Male
  Weight: 58 kg

DRUGS (9)
  1. PEG-INTERFERON ALFA 2A (RO 25-8310) [Suspect]
     Route: 058
     Dates: start: 20060206
  2. LISINOPRIL [Concomitant]
  3. NORVASC [Concomitant]
  4. MOXONIDINE [Concomitant]
  5. RENAGEL [Concomitant]
  6. PANTOPRAZOLE SODIUM [Concomitant]
  7. ARANESP [Concomitant]
  8. ZYRTEC [Concomitant]
  9. ATARAX [Concomitant]

REACTIONS (1)
  - TACHYCARDIA [None]
